FAERS Safety Report 19174620 (Version 1)
Quarter: 2021Q2

REPORT INFORMATION
  Report Type: Spontaneous
  Country: US (occurrence: US)
  Receive Date: 20210423
  Receipt Date: 20210423
  Transmission Date: 20210717
  Serious: No
  Sender: FDA-Public Use
  Company Number: US-ABBVIE-21K-163-3843692-00

PATIENT
  Sex: Female

DRUGS (1)
  1. ORILISSA [Suspect]
     Active Substance: ELAGOLIX SODIUM
     Indication: PRODUCT USED FOR UNKNOWN INDICATION
     Route: 048

REACTIONS (5)
  - Discomfort [Not Recovered/Not Resolved]
  - Illness [Unknown]
  - Foreign body in throat [Unknown]
  - Hyperactive pharyngeal reflex [Unknown]
  - Nausea [Not Recovered/Not Resolved]
